FAERS Safety Report 8895231 (Version 1)
Quarter: 2012Q4

REPORT INFORMATION
  Report Type: 
  Country: US (occurrence: US)
  Receive Date: 20121107
  Receipt Date: 20121107
  Transmission Date: 20130627
  Serious: Yes (Other)
  Sender: FDA-Public Use
  Company Number: US-AMGEN-USASP2011056455

PATIENT
  Age: 60 Year
  Sex: Female

DRUGS (1)
  1. ENBREL [Suspect]
     Indication: POLYARTHRITIS
     Dosage: 50 mg, qwk
     Dates: start: 20050101

REACTIONS (3)
  - Malignant melanoma [Recovered/Resolved]
  - Melanocytic naevus [Recovered/Resolved]
  - Infection [Unknown]
